FAERS Safety Report 7233528-X (Version None)
Quarter: 2011Q1

REPORT INFORMATION
  Report Type: 
  Country: None (occurrence: None)
  Receive Date: 20110113
  Receipt Date: 20110113
  Transmission Date: 20110831
  Serious: Yes (Other)
  Sender: FDA-Public Use
  Company Number: None

PATIENT
  Sex: Male
  Weight: 63.6 kg

DRUGS (3)
  1. STELARA PREFILLED SYRINGE [Suspect]
     Indication: PSORIASIS
     Dosage: 45MG EVERY 12 WEEKS SUBCUTANEOUSLY
     Route: 058
     Dates: start: 20100601
  2. STELARA PREFILLED SYRINGE [Suspect]
     Indication: PSORIASIS
     Dosage: 45MG EVERY 12 WEEKS SUBCUTANEOUSLY
     Route: 058
     Dates: start: 20101201
  3. STELARA PREFILLED SYRINGE [Suspect]
     Indication: PSORIASIS
     Dosage: 45MG EVERY 12 WEEKS SUBCUTANEOUSLY
     Route: 058
     Dates: start: 20100901

REACTIONS (4)
  - DYSARTHRIA [None]
  - HYPOAESTHESIA ORAL [None]
  - HYPOAESTHESIA [None]
  - HEADACHE [None]
